FAERS Safety Report 7620610-8 (Version None)
Quarter: 2011Q3

REPORT INFORMATION
  Report Type: 
  Country: None (occurrence: None)
  Receive Date: 20110719
  Receipt Date: 20110713
  Transmission Date: 20111222
  Serious: Yes (Death)
  Sender: FDA-Public Use
  Company Number: AU-ROCHE-790175

PATIENT
  Sex: Male

DRUGS (4)
  1. QUETIAPINE [Suspect]
     Route: 065
  2. QUETIAPINE [Suspect]
     Dosage: FREQUENCY: DAILY
     Route: 065
  3. CLOZAPINE [Suspect]
     Dosage: FREQUENCY: DAILY
     Route: 048
     Dates: start: 19971020
  4. CLONAZEPAM [Suspect]
     Dosage: FREQUENCY: DAILY
     Route: 065

REACTIONS (1)
  - DEATH [None]
